FAERS Safety Report 20480897 (Version 1)
Quarter: 2022Q1

REPORT INFORMATION
  Report Type: Spontaneous
  Country: US (occurrence: None)
  Receive Date: 20220216
  Receipt Date: 20220216
  Transmission Date: 20220423
  Serious: Yes (Death)
  Sender: FDA-Public Use
  Company Number: None

PATIENT
  Age: 69 Year
  Sex: Male
  Weight: 85.7 kg

DRUGS (1)
  1. UMBRALISIB [Suspect]
     Active Substance: UMBRALISIB
     Indication: Follicular lymphoma
     Dosage: FREQUENCY : DAILY;?
     Route: 048
     Dates: start: 20210726, end: 20220105

REACTIONS (7)
  - Fatigue [None]
  - Hyperhidrosis [None]
  - Diarrhoea [None]
  - Alcohol use [None]
  - Cough [None]
  - Respiratory tract congestion [None]
  - Bronchitis [None]

NARRATIVE: CASE EVENT DATE: 20220105
